FAERS Safety Report 7428402-X (Version None)
Quarter: 2011Q2

REPORT INFORMATION
  Report Type: 
  Country: None (occurrence: None)
  Receive Date: 20110421
  Receipt Date: 20110412
  Transmission Date: 20111010
  Serious: Yes (Other)
  Sender: FDA-Public Use
  Company Number: PHHY2011AU09365

PATIENT
  Sex: Female

DRUGS (1)
  1. ACLASTA [Suspect]
     Dates: start: 20100501

REACTIONS (2)
  - MOYAMOYA DISEASE [None]
  - CYST [None]
